FAERS Safety Report 9702208 (Version 3)
Quarter: 2013Q4

REPORT INFORMATION
  Report Type: Report from Study
  Country: CA (occurrence: CA)
  Receive Date: 20131121
  Receipt Date: 20131212
  Transmission Date: 20140711
  Serious: Yes (Hospitalization)
  Sender: FDA-Public Use
  Company Number: PHHY2013CA007489

PATIENT
  Age: 73 Year
  Sex: Female

DRUGS (2)
  1. EXELON PATCH [Suspect]
     Indication: DEMENTIA ALZHEIMER^S TYPE
     Dosage: 4.6 MG, DAILY
     Route: 062
     Dates: start: 20130116
  2. EXELON PATCH [Suspect]
     Dosage: 9.5 MG (PATCH 10 CM2), DAILY
     Route: 062

REACTIONS (10)
  - Clavicle fracture [Unknown]
  - Upper limb fracture [Unknown]
  - Fall [Unknown]
  - Muscular weakness [Unknown]
  - Movement disorder [Unknown]
  - Balance disorder [Unknown]
  - Pruritus [Unknown]
  - Application site erythema [Unknown]
  - Application site pruritus [Unknown]
  - Drug ineffective [Unknown]
